FAERS Safety Report 11391480 (Version 1)
Quarter: 2015Q3

REPORT INFORMATION
  Report Type: Report from Study
  Country: US (occurrence: US)
  Receive Date: 20150818
  Receipt Date: 20150818
  Transmission Date: 20151125
  Serious: Yes (Hospitalization, Other)
  Sender: FDA-Public Use
  Company Number: PHHY2014US142867

PATIENT
  Age: 41 Year
  Sex: Male

DRUGS (36)
  1. TRAMADOL. [Concomitant]
     Active Substance: TRAMADOL
     Indication: ABDOMINAL PAIN
     Dosage: 50 MG, UNK
     Route: 048
     Dates: start: 201405
  2. INFLUENZA VACCINE [Concomitant]
     Active Substance: INFLUENZA VIRUS VACCINE
     Indication: PROPHYLAXIS
     Dosage: 0.5 MG, UNK
     Route: 030
     Dates: start: 20140922, end: 20140922
  3. TRAMADOL. [Concomitant]
     Active Substance: TRAMADOL
     Indication: BACK PAIN
  4. OMEPRAZOLE. [Concomitant]
     Active Substance: OMEPRAZOLE
     Indication: DYSPEPSIA
  5. MAGNESIUM OXIDE. [Concomitant]
     Active Substance: MAGNESIUM OXIDE
     Indication: HYPOMAGNESAEMIA
     Dosage: 500 MG, UNK
     Route: 048
     Dates: start: 20140805
  6. POTASSIUM CHLORIDE. [Concomitant]
     Active Substance: POTASSIUM CHLORIDE
     Dosage: 40 OT, UNK
     Route: 042
     Dates: start: 20141009, end: 20141009
  7. CREON [Concomitant]
     Active Substance: PANCRELIPASE AMYLASE\PANCRELIPASE LIPASE\PANCRELIPASE PROTEASE
     Indication: PRODUCT USED FOR UNKNOWN INDICATION
     Dosage: 12000 IU, UNK
     Route: 048
     Dates: start: 20140924, end: 20140926
  8. OXALIPLATIN. [Suspect]
     Active Substance: OXALIPLATIN
     Indication: ADENOCARCINOMA GASTRIC
     Dosage: 152 MG, ONCE IN EVERY 14 DAYS
     Route: 042
     Dates: start: 20140606, end: 20141009
  9. 5-FLUOROURACIL [Suspect]
     Active Substance: FLUOROURACIL
     Indication: ADENOCARCINOMA GASTRIC
     Dosage: 716 MG, ONCE IN EVERY 14 DAYS
     Route: 040
     Dates: start: 20140606, end: 20141009
  10. BACLOFEN. [Concomitant]
     Active Substance: BACLOFEN
     Indication: ERUCTATION
  11. DEXAMETHASONE. [Concomitant]
     Active Substance: DEXAMETHASONE
     Dosage: 10 MG, UNK
     Route: 042
     Dates: start: 20140606
  12. MAGNESIUM SULFATE. [Concomitant]
     Active Substance: MAGNESIUM SULFATE
     Dosage: 32 OT, UNK
     Route: 042
     Dates: start: 20141009, end: 20141009
  13. FOLINIC ACID [Suspect]
     Active Substance: LEUCOVORIN
     Indication: ADENOCARCINOMA GASTRIC
     Dosage: 716 MG, ONCE IN EVERY 14 DAYS
     Route: 042
     Dates: start: 20140606, end: 20141009
  14. IPATASERTIB [Suspect]
     Active Substance: IPATASERTIB
     Indication: ADENOCARCINOMA GASTRIC
     Route: 048
     Dates: start: 20140606, end: 20141009
  15. PROCHLORPERAZINE. [Concomitant]
     Active Substance: PROCHLORPERAZINE
     Indication: VOMITING
  16. DEXAMETHASONE. [Concomitant]
     Active Substance: DEXAMETHASONE
     Indication: PROPHYLAXIS OF NAUSEA AND VOMITING
     Dosage: 10 MG, UNK
     Route: 042
     Dates: start: 20140606, end: 20140923
  17. FOSAPREPITANT [Concomitant]
     Active Substance: FOSAPREPITANT
     Indication: PROPHYLAXIS OF NAUSEA AND VOMITING
     Dosage: 150 MG, UNK
     Route: 042
     Dates: start: 20140708, end: 20140923
  18. BACLOFEN. [Concomitant]
     Active Substance: BACLOFEN
     Indication: HICCUPS
     Dosage: 10 MG, UNK
     Route: 048
     Dates: start: 201306
  19. PROCHLORPERAZINE. [Concomitant]
     Active Substance: PROCHLORPERAZINE
     Indication: NAUSEA
     Dosage: 10 MG, UNK
     Route: 048
     Dates: start: 201306
  20. NORMAL SALINE [Concomitant]
     Active Substance: SODIUM CHLORIDE
     Dosage: 1000 ML, UNK
     Route: 042
     Dates: start: 20141009, end: 20141009
  21. LEVAQUIN [Concomitant]
     Active Substance: LEVOFLOXACIN
     Indication: URINARY TRACT INFECTION
     Dosage: 500 MG, UNK
     Route: 048
     Dates: start: 20140910, end: 20140916
  22. SENNA S [Concomitant]
     Active Substance: DOCUSATE SODIUM\SENNA LEAF
     Indication: CONSTIPATION
     Dosage: 2 DF, UNK
     Route: 048
     Dates: start: 20140924, end: 20141006
  23. FENTANYL. [Concomitant]
     Active Substance: FENTANYL
     Indication: ABDOMINAL PAIN
     Dosage: 25 MG, UNK
     Route: 062
     Dates: start: 20140606
  24. FENTANYL. [Concomitant]
     Active Substance: FENTANYL
     Indication: BACK PAIN
  25. LISINOPRIL. [Concomitant]
     Active Substance: LISINOPRIL
     Indication: HYPERTENSION
     Dosage: 20 MG, UNK
     Route: 048
  26. OMEPRAZOLE. [Concomitant]
     Active Substance: OMEPRAZOLE
     Indication: GASTROOESOPHAGEAL REFLUX DISEASE
     Dosage: 40 MG, UNK
     Route: 048
     Dates: start: 20140620
  27. ADVIL [Concomitant]
     Active Substance: IBUPROFEN
     Indication: ABDOMINAL PAIN
  28. LEVOFLOXACIN. [Concomitant]
     Active Substance: LEVOFLOXACIN
     Indication: EAR INFECTION
     Dosage: 500 MG, UNK
     Route: 048
     Dates: start: 20140923, end: 20141002
  29. BACLOFEN. [Concomitant]
     Active Substance: BACLOFEN
     Indication: HICCUPS
     Dosage: 10 MG, UNK
     Route: 048
     Dates: start: 20140923, end: 20140925
  30. 5-FLUOROURACIL [Suspect]
     Active Substance: FLUOROURACIL
     Dosage: 4296 MG, ONCE IN EVERY 14 DAYS
     Route: 041
     Dates: start: 20140606, end: 20141009
  31. ONDANSETRON [Concomitant]
     Active Substance: ONDANSETRON
     Indication: PROPHYLAXIS OF NAUSEA AND VOMITING
     Dosage: 8 MG, UNK
     Route: 042
     Dates: start: 20140606, end: 20140923
  32. ADVIL [Concomitant]
     Active Substance: IBUPROFEN
     Indication: BACK PAIN
     Dosage: 200 MG, UNK
     Route: 048
     Dates: start: 20140620
  33. NORMAL SALINE [Concomitant]
     Active Substance: SODIUM CHLORIDE
     Indication: DEHYDRATION
     Dosage: 1000 ML, UNK
     Route: 042
     Dates: start: 20140923, end: 20140923
  34. MAGNESIUM SULFATE. [Concomitant]
     Active Substance: MAGNESIUM SULFATE
     Indication: HYPOMAGNESAEMIA
     Dosage: 16 OT, UNK
     Route: 042
     Dates: start: 20140923, end: 20140923
  35. POTASSIUM CHLORIDE. [Concomitant]
     Active Substance: POTASSIUM CHLORIDE
     Indication: HYPOKALAEMIA
     Dosage: 40 OT, UNK
     Route: 042
     Dates: start: 20140923, end: 20140923
  36. MIRTAZAPINE. [Concomitant]
     Active Substance: MIRTAZAPINE
     Indication: DECREASED APPETITE
     Dosage: 30 MG, UNK
     Route: 048
     Dates: start: 20140819

REACTIONS (5)
  - Vomiting [Recovered/Resolved]
  - Malignant neoplasm progression [Unknown]
  - Adenocarcinoma gastric [Unknown]
  - Small intestinal obstruction [Not Recovered/Not Resolved]
  - Dehydration [Recovered/Resolved]

NARRATIVE: CASE EVENT DATE: 20141014
